FAERS Safety Report 9555001 (Version 1)
Quarter: 2013Q3

REPORT INFORMATION
  Report Type: Spontaneous
  Country: US (occurrence: None)
  Receive Date: 20130913
  Receipt Date: 20130913
  Transmission Date: 20140515
  Serious: Yes (Life-Threatening, Hospitalization, Disabling)
  Sender: FDA-Public Use
  Company Number: 2012SCPR004738

PATIENT
  Age: 58 Year
  Sex: Female
  Weight: 61.7 kg

DRUGS (2)
  1. MEGESTROL ACETATE [Suspect]
     Indication: PRODUCT USED FOR UNKNOWN INDICATION
     Dosage: UNK, UNKNOWN, ORAL
     Route: 048
  2. BEVACIZUMAB (BEVACIZUMAB) INJECTION [Concomitant]

REACTIONS (1)
  - Pulmonary embolism [None]
